FAERS Safety Report 10053611 (Version 2)
Quarter: 2014Q2

REPORT INFORMATION
  Report Type: Spontaneous
  Country: IT (occurrence: IT)
  Receive Date: 20140402
  Receipt Date: 20140429
  Transmission Date: 20141212
  Serious: Yes (Hospitalization)
  Sender: FDA-Public Use
  Company Number: IT-WATSON-2014-06206

PATIENT
  Age: 34 Year
  Sex: Female

DRUGS (6)
  1. ZOLPIDEM (UNKNOWN) [Suspect]
     Indication: DEPRESSION
     Dosage: 100 MG, TOTAL
     Route: 048
     Dates: start: 20140220, end: 20140220
  2. ZOLPIDEM (UNKNOWN) [Suspect]
     Dosage: 1 DF, DAILY
     Route: 048
  3. HALCION [Suspect]
     Indication: INSOMNIA
     Dosage: 2.5 MG, TOTAL
     Route: 048
     Dates: start: 20140220, end: 20140220
  4. HALCION [Suspect]
     Dosage: 1 DF, QPM
     Route: 048
  5. LEXOTAN [Suspect]
     Indication: ANXIETY
     Dosage: 10 ML, TOTAL
     Route: 048
     Dates: start: 20140220, end: 20140220
  6. LEXOTAN [Suspect]
     Dosage: 15 GTT, PRN
     Route: 048

REACTIONS (4)
  - Drug abuse [Recovered/Resolved]
  - Sopor [Recovered/Resolved]
  - Intentional self-injury [Recovered/Resolved]
  - Depression [Recovered/Resolved]
